FAERS Safety Report 16320031 (Version 1)
Quarter: 2019Q2

REPORT INFORMATION
  Report Type: Spontaneous
  Country: CO (occurrence: CO)
  Receive Date: 20190516
  Receipt Date: 20190516
  Transmission Date: 20190711
  Serious: Yes (Other)
  Sender: FDA-Public Use
  Company Number: CO-CELGENEUS-COL-20190502865

PATIENT
  Age: 78 Year
  Sex: Male

DRUGS (1)
  1. REVLIMID [Suspect]
     Active Substance: LENALIDOMIDE
     Indication: PLASMA CELL MYELOMA
     Dosage: 10 MILLIGRAM
     Route: 048
     Dates: start: 20180813, end: 20190405

REACTIONS (1)
  - Hyperkalaemia [Not Recovered/Not Resolved]

NARRATIVE: CASE EVENT DATE: 20190412
